FAERS Safety Report 20079510 (Version 1)
Quarter: 2021Q4

REPORT INFORMATION
  Report Type: Spontaneous
  Country: RO (occurrence: RO)
  Receive Date: 20211117
  Receipt Date: 20211117
  Transmission Date: 20220303
  Serious: Yes (Other)
  Sender: FDA-Public Use
  Company Number: RO-NOVARTISPH-NVSC2021RO258873

PATIENT

DRUGS (1)
  1. NILOTINIB [Suspect]
     Active Substance: NILOTINIB
     Indication: Chronic myeloid leukaemia
     Dosage: UNK (NILOTINIB INITIATED 2 YEARS AGO)
     Route: 065

REACTIONS (3)
  - Severe acute respiratory syndrome [Recovering/Resolving]
  - Diabetes mellitus [Recovering/Resolving]
  - Blood glucose increased [Recovering/Resolving]
